FAERS Safety Report 14061060 (Version 1)
Quarter: 2017Q4

REPORT INFORMATION
  Report Type: Spontaneous
  Country: US (occurrence: US)
  Receive Date: 20171008
  Receipt Date: 20171008
  Transmission Date: 20180321
  Serious: No
  Sender: FDA-Public Use
  Company Number: US-TEVA-807339ACC

PATIENT
  Sex: Female

DRUGS (1)
  1. NITROFURANTOIN MACROCRYSTALS [Suspect]
     Active Substance: NITROFURANTOIN
     Indication: ESCHERICHIA INFECTION
     Dates: start: 201703

REACTIONS (6)
  - Rash macular [Unknown]
  - Coagulopathy [Unknown]
  - Alopecia [Unknown]
  - Contusion [Unknown]
  - Madarosis [Unknown]
  - Skin texture abnormal [Unknown]

NARRATIVE: CASE EVENT DATE: 2017
